FAERS Safety Report 6827612-X (Version None)
Quarter: 2010Q3

REPORT INFORMATION
  Report Type: 
  Country: None (occurrence: None)
  Receive Date: 20100709
  Receipt Date: 20070122
  Transmission Date: 20110219
  Serious: No
  Sender: FDA-Public Use
  Company Number: US-PFIZER INC-2007006468

PATIENT
  Sex: Female
  Weight: 47.63 kg

DRUGS (6)
  1. CHANTIX [Suspect]
     Dates: start: 20070118, end: 20070121
  2. MUCINEX [Suspect]
     Indication: NASOPHARYNGITIS
     Dates: start: 20070117, end: 20070121
  3. CITRUCEL [Concomitant]
  4. EVISTA [Concomitant]
  5. MONTELUKAST [Concomitant]
  6. VITAMINS [Concomitant]

REACTIONS (5)
  - FEELING JITTERY [None]
  - ILL-DEFINED DISORDER [None]
  - INSOMNIA [None]
  - NAUSEA [None]
  - PAIN [None]
